FAERS Safety Report 8459054-8 (Version None)
Quarter: 2012Q2

REPORT INFORMATION
  Report Type: 
  Country: None (occurrence: None)
  Receive Date: 20120622
  Receipt Date: 20120620
  Transmission Date: 20120825
  Serious: Yes (Hospitalization)
  Sender: FDA-Public Use
  Company Number: DE-BAYER-2011-097744

PATIENT
  Age: 74 Year
  Sex: Male

DRUGS (2)
  1. AVELOX [Suspect]
     Indication: ULCER
     Dosage: UNK
     Route: 042
     Dates: start: 20110408
  2. METFORMIN HCL [Concomitant]
     Indication: DIABETES MELLITUS

REACTIONS (2)
  - OSTEOMYELITIS [None]
  - PERIPHERAL ARTERIAL OCCLUSIVE DISEASE [None]
